FAERS Safety Report 8541333 (Version 4)
Quarter: 2012Q4

REPORT INFORMATION
  Report Type: 
  Country: IE (occurrence: IE)
  Receive Date: 20120502
  Receipt Date: 20120829
  Transmission Date: 20130627
  Serious: Yes (Hospitalization)
  Sender: FDA-Public Use
  Company Number: IE-GLAXOSMITHKLINE-B0793221A

PATIENT
  Sex: Male

DRUGS (3)
  1. VENTOLIN EVOHALER [Suspect]
     Indication: ASTHMA
     Route: 065
     Dates: start: 200909
  2. BECOTIDE NASAL [Suspect]
     Indication: ASTHMA
     Dosage: 100MCG Twice per day
     Route: 065
     Dates: start: 200912
  3. PREDNISOLONE [Concomitant]
     Indication: ASTHMA

REACTIONS (2)
  - Asthma [Recovered/Resolved]
  - Product quality issue [Unknown]
